FAERS Safety Report 8958402 (Version 2)
Quarter: 2013Q1

REPORT INFORMATION
  Report Type: Report from Study
  Country: DE (occurrence: DE)
  Receive Date: 20121210
  Receipt Date: 20130129
  Transmission Date: 20140127
  Serious: Yes (Death, Hospitalization)
  Sender: FDA-Public Use
  Company Number: DE-VIIV HEALTHCARE LIMITED-B0850450A

PATIENT
  Age: 71 Year
  Sex: Male

DRUGS (6)
  1. MARAVIROC [Suspect]
     Indication: HIV INFECTION
     Dosage: 300MG PER DAY
     Route: 048
     Dates: start: 20120623
  2. RALTEGRAVIR [Concomitant]
     Indication: HIV INFECTION
     Dosage: 800MG PER DAY
     Dates: start: 20100407
  3. METOPROLOL [Concomitant]
     Dates: start: 200107
  4. PRAVASIN [Concomitant]
     Dates: start: 200107
  5. NEPHROTRANS [Concomitant]
     Dates: start: 20120110
  6. VIT D [Concomitant]
     Dates: start: 20120110

REACTIONS (2)
  - Device related infection [Not Recovered/Not Resolved]
  - Myocardial infarction [Fatal]
